FAERS Safety Report 12838979 (Version 1)
Quarter: 2016Q4

REPORT INFORMATION
  Report Type: Spontaneous
  Country: US (occurrence: US)
  Receive Date: 20161011
  Receipt Date: 20161011
  Transmission Date: 20170207
  Serious: No
  Sender: FDA-Public Use
  Company Number: None

PATIENT
  Age: 65 Year
  Sex: Female

DRUGS (5)
  1. HARVONI [Suspect]
     Active Substance: LEDIPASVIR\SOFOSBUVIR
     Indication: TYPE 2 DIABETES MELLITUS
     Dosage: 90-400 1QD ORAL
     Route: 048
     Dates: start: 20160919
  2. HARVONI [Suspect]
     Active Substance: LEDIPASVIR\SOFOSBUVIR
     Indication: HYPERLIPIDAEMIA
     Dosage: 90-400 1QD ORAL
     Route: 048
     Dates: start: 20160919
  3. HARVONI [Suspect]
     Active Substance: LEDIPASVIR\SOFOSBUVIR
     Indication: CHRONIC HEPATITIS C
     Dosage: 90-400 1QD ORAL
     Route: 048
     Dates: start: 20160919
  4. HARVONI [Suspect]
     Active Substance: LEDIPASVIR\SOFOSBUVIR
     Indication: ESSENTIAL HYPERTENSION
     Dosage: 90-400 1QD ORAL
     Route: 048
     Dates: start: 20160919
  5. HARVONI [Suspect]
     Active Substance: LEDIPASVIR\SOFOSBUVIR
     Indication: IRON DEFICIENCY ANAEMIA
     Dosage: 90-400 1QD ORAL
     Route: 048
     Dates: start: 20160919

REACTIONS (4)
  - Arthropathy [None]
  - Headache [None]
  - Fatigue [None]
  - Musculoskeletal disorder [None]

NARRATIVE: CASE EVENT DATE: 20161011
